FAERS Safety Report 6198249-3 (Version None)
Quarter: 2009Q2

REPORT INFORMATION
  Report Type: 
  Country: None (occurrence: None)
  Receive Date: 20090518
  Receipt Date: 20081030
  Transmission Date: 20091009
  Serious: Yes (Other)
  Sender: FDA-Public Use
  Company Number: WWISSUE-231

PATIENT
  Sex: Female

DRUGS (3)
  1. PREDNISONE TAB [Suspect]
     Indication: ARTHRITIS
  2. METHOTREXATE [Concomitant]
  3. CIPROFLOXACIN [Concomitant]

REACTIONS (1)
  - DRUG INEFFECTIVE [None]
